FAERS Safety Report 21104959 (Version 1)
Quarter: 2022Q3

REPORT INFORMATION
  Report Type: Report from Study
  Country: FR (occurrence: FR)
  Receive Date: 20220720
  Receipt Date: 20220720
  Transmission Date: 20221026
  Serious: Yes (Hospitalization)
  Sender: FDA-Public Use
  Company Number: FR-SERVIER-S22007291

PATIENT

DRUGS (7)
  1. PEGASPARGASE [Suspect]
     Active Substance: PEGASPARGASE
     Indication: Acute lymphocytic leukaemia
     Dosage: 1800 IU, D12
     Route: 042
     Dates: start: 20211010
  2. METHYLPREDNISOLONE [Suspect]
     Active Substance: METHYLPREDNISOLONE
     Indication: Acute lymphocytic leukaemia
     Dosage: 88 MG, D1 TO D28
     Route: 042
     Dates: start: 20210929
  3. METHOTREXATE [Suspect]
     Active Substance: METHOTREXATE
     Indication: Acute lymphocytic leukaemia
     Dosage: 12 MG, D1, D13, D24
     Route: 037
     Dates: start: 20210929, end: 20211022
  4. CYTARABINE [Suspect]
     Active Substance: CYTARABINE
     Indication: Acute lymphocytic leukaemia
     Dosage: 30 MG, D1, D13, D24
     Route: 037
     Dates: start: 20210929, end: 20211022
  5. HYDROCORTISONE [Suspect]
     Active Substance: HYDROCORTISONE
     Indication: Acute lymphocytic leukaemia
     Dosage: 14 MG, D1, D13, D24
     Route: 037
     Dates: start: 20210929, end: 20211022
  6. VINCRISTINE [Suspect]
     Active Substance: VINCRISTINE
     Indication: Acute lymphocytic leukaemia
     Dosage: 1.2 MG, D8, D15, D22, D29 CANCELLED)
     Route: 042
     Dates: start: 20211006, end: 20211020
  7. DAUNORUBICIN [Suspect]
     Active Substance: DAUNORUBICIN
     Indication: Acute lymphocytic leukaemia
     Dosage: 20 MG, D8, D15, D22, D29
     Route: 042
     Dates: start: 20211006, end: 20211027

REACTIONS (1)
  - Streptococcal sepsis [Recovering/Resolving]

NARRATIVE: CASE EVENT DATE: 20211022
